FAERS Safety Report 4459258-5 (Version None)
Quarter: 2004Q3

REPORT INFORMATION
  Report Type: 
  Country: None (occurrence: None)
  Receive Date: 20040922
  Receipt Date: 20040922
  Transmission Date: 20050211
  Serious: Yes (Other)
  Sender: FDA-Public Use
  Company Number: None

PATIENT
  Sex: Male
  Weight: 80.9 kg

DRUGS (6)
  1. OMEPRAZOLE [Suspect]
     Indication: GASTROOESOPHAGEAL REFLUX DISEASE
     Dosage: 20 MG DAILY ORAL
     Route: 048
     Dates: start: 20040413, end: 20040819
  2. CYCLOBENZAPRINE HCL [Concomitant]
  3. ETODOLAC [Concomitant]
  4. LORATADINE [Concomitant]
  5. SILDENAFIL CITRATE [Concomitant]
  6. SIMVASTATIN [Concomitant]

REACTIONS (1)
  - ERUCTATION [None]
